FAERS Safety Report 24895266 (Version 1)
Quarter: 2025Q1

REPORT INFORMATION
  Report Type: Spontaneous
  Country: US (occurrence: None)
  Receive Date: 20250128
  Receipt Date: 20250128
  Transmission Date: 20250408
  Serious: Yes (Hospitalization)
  Sender: FDA-CTU
  Company Number: None

PATIENT
  Sex: Male

DRUGS (2)
  1. TALZENNA [Suspect]
     Active Substance: TALAZOPARIB TOSYLATE
     Indication: Prostate cancer
     Dosage: 0.5MG 1 TIME A DAY BY MOUTH
     Route: 048
     Dates: start: 202409
  2. XTANDI [Concomitant]
     Active Substance: ENZALUTAMIDE

REACTIONS (1)
  - Hospitalisation [None]
